FAERS Safety Report 6579364-9 (Version None)
Quarter: 2010Q1

REPORT INFORMATION
  Report Type: 
  Country: None (occurrence: None)
  Receive Date: 20100212
  Receipt Date: 20100201
  Transmission Date: 20100710
  Serious: No
  Sender: FDA-Public Use
  Company Number: US-ELI_LILLY_AND_COMPANY-US201002002606

PATIENT
  Age: 39 Year

DRUGS (6)
  1. CYMBALTA [Suspect]
     Indication: FIBROMYALGIA
     Dosage: 60 MG, EACH MORNING
     Route: 065
     Dates: start: 20090101, end: 20100101
  2. CYMBALTA [Suspect]
     Dosage: 30 MG, EACH EVENING
     Route: 065
  3. VICODIN [Concomitant]
     Dosage: UNK, AS NEEDED
     Route: 065
  4. LORAZEPAM [Concomitant]
     Dosage: UNK, AS NEEDED
     Route: 065
  5. AMITRIPTYLINE HCL [Concomitant]
     Dosage: UNK, UNKNOWN
     Route: 065
  6. ORTHO TRI-CYCLEN [Concomitant]
     Dosage: UNK, UNKNOWN
     Route: 065

REACTIONS (2)
  - ALANINE AMINOTRANSFERASE INCREASED [None]
  - NIGHT SWEATS [None]
